FAERS Safety Report 8287983-7 (Version None)
Quarter: 2012Q2

REPORT INFORMATION
  Report Type: 
  Country: None (occurrence: None)
  Receive Date: 20120416
  Receipt Date: 20120405
  Transmission Date: 20120825
  Serious: Yes (Other)
  Sender: FDA-Public Use
  Company Number: JP-ROCHE-1054137

PATIENT
  Sex: Male

DRUGS (6)
  1. VISUDYNE [Suspect]
     Indication: AGE-RELATED MACULAR DEGENERATION
     Route: 042
     Dates: start: 20111003
  2. VISUDYNE [Suspect]
     Dates: start: 20111216
  3. LUCENTIS [Suspect]
     Route: 031
     Dates: start: 20111216
  4. LUCENTIS [Suspect]
     Route: 031
     Dates: start: 20111014
  5. LUCENTIS [Suspect]
     Indication: AGE-RELATED MACULAR DEGENERATION
     Route: 031
     Dates: start: 20111011, end: 20111012
  6. LUCENTIS [Suspect]
     Route: 031
     Dates: start: 20111118

REACTIONS (3)
  - INJECTION SITE PAIN [None]
  - AGE-RELATED MACULAR DEGENERATION [None]
  - RETINAL VASCULAR THROMBOSIS [None]
